FAERS Safety Report 6829093-9 (Version None)
Quarter: 2010Q3

REPORT INFORMATION
  Report Type: 
  Country: None (occurrence: None)
  Receive Date: 20100709
  Receipt Date: 20070403
  Transmission Date: 20110219
  Serious: No
  Sender: FDA-Public Use
  Company Number: US-PFIZER INC-2007017678

PATIENT
  Age: 77 Year
  Sex: Female

DRUGS (3)
  1. CHANTIX [Suspect]
     Indication: SMOKING CESSATION THERAPY
     Route: 048
     Dates: start: 20070221, end: 20070302
  2. PROPYLENE GLYCOL [Concomitant]
     Indication: CONSTIPATION
  3. BUPROPION HCL [Concomitant]
     Indication: SMOKING CESSATION THERAPY

REACTIONS (3)
  - HEADACHE [None]
  - NAUSEA [None]
  - RETCHING [None]
